FAERS Safety Report 7231898-X (Version None)
Quarter: 2011Q1

REPORT INFORMATION
  Report Type: 
  Country: None (occurrence: None)
  Receive Date: 20110118
  Receipt Date: 20110110
  Transmission Date: 20110831
  Serious: Yes (Hospitalization)
  Sender: FDA-Public Use
  Company Number: US-MYLANLABS-2011S1000736

PATIENT
  Age: 42 Year
  Sex: Male
  Weight: 117.94 kg

DRUGS (4)
  1. FENTANYL-100 [Suspect]
     Indication: CHEST PAIN
     Dosage: CHANGED Q72H
     Route: 062
     Dates: start: 20100421, end: 20100501
  2. ACTOPLUS MET [Concomitant]
     Indication: DIABETES MELLITUS
     Route: 048
  3. CRESTOR [Concomitant]
     Indication: BLOOD CHOLESTEROL INCREASED
     Route: 048
  4. LISINOPRIL [Concomitant]
     Indication: BLOOD PRESSURE INCREASED
     Route: 048

REACTIONS (4)
  - CORONARY ARTERY OCCLUSION [None]
  - HEART RATE INCREASED [None]
  - CHEST PAIN [None]
  - ARRHYTHMIA [None]
